FAERS Safety Report 19827687 (Version 8)
Quarter: 2022Q2

REPORT INFORMATION
  Report Type: Report from Study
  Country: DO (occurrence: DO)
  Receive Date: 20210914
  Receipt Date: 20220506
  Transmission Date: 20220721
  Serious: Yes (Life-Threatening, Other)
  Sender: FDA-Public Use
  Company Number: NVSC2021DO196664

PATIENT
  Age: 36 Year
  Sex: Female
  Weight: 71 kg

DRUGS (10)
  1. GILENYA [Suspect]
     Active Substance: FINGOLIMOD HYDROCHLORIDE
     Indication: Relapsing-remitting multiple sclerosis
     Dosage: 0.5 MG, QD
     Route: 048
     Dates: start: 20210827
  2. GILENYA [Suspect]
     Active Substance: FINGOLIMOD HYDROCHLORIDE
     Dosage: 0.5 MG, QD
     Route: 048
     Dates: start: 20210827
  3. GILENYA [Suspect]
     Active Substance: FINGOLIMOD HYDROCHLORIDE
     Dosage: 0.5 MG (EVERY OTHER DAY)
     Route: 048
     Dates: start: 20210827, end: 202110
  4. GILENYA [Suspect]
     Active Substance: FINGOLIMOD HYDROCHLORIDE
     Dosage: 0.5 MG, QD
     Route: 048
  5. GILENYA [Suspect]
     Active Substance: FINGOLIMOD HYDROCHLORIDE
     Dosage: 0.5 MG, QD
     Route: 065
  6. GILENYA [Suspect]
     Active Substance: FINGOLIMOD HYDROCHLORIDE
     Dosage: 0.5 MG
     Route: 065
  7. GILENYA [Suspect]
     Active Substance: FINGOLIMOD HYDROCHLORIDE
     Dosage: 0.5 MG, QD
     Route: 048
     Dates: start: 20211027
  8. BETAFERON [Suspect]
     Active Substance: INTERFERON BETA-1B
     Indication: Product used for unknown indication
     Dosage: UNK
     Route: 065
  9. VITAMIN D3 [Concomitant]
     Active Substance: CHOLECALCIFEROL
     Indication: Product used for unknown indication
     Dosage: UNK
     Route: 065
  10. VITAMIN C [Concomitant]
     Active Substance: ASCORBIC ACID
     Indication: Product used for unknown indication
     Dosage: UNK
     Route: 065

REACTIONS (27)
  - Concomitant disease aggravated [Recovered/Resolved]
  - Blood pressure increased [Unknown]
  - Arrhythmia [Unknown]
  - Multiple sclerosis [Unknown]
  - Hypothyroidism [Unknown]
  - Neck pain [Unknown]
  - Respiratory rate decreased [Unknown]
  - Chest pain [Unknown]
  - Blood pressure fluctuation [Unknown]
  - Palpitations [Unknown]
  - Hypersensitivity [Recovering/Resolving]
  - Feeling abnormal [Unknown]
  - Malaise [Unknown]
  - Heart rate increased [Unknown]
  - Varicella [Recovered/Resolved]
  - Abdominal pain upper [Unknown]
  - Lymphocyte count decreased [Recovering/Resolving]
  - Heart rate decreased [Unknown]
  - Herpes zoster [Recovering/Resolving]
  - Pruritus [Unknown]
  - Hepatic enzyme increased [Recovering/Resolving]
  - Cough [Unknown]
  - Headache [Unknown]
  - Influenza [Not Recovered/Not Resolved]
  - Anxiety [Unknown]
  - Hypertension [Recovering/Resolving]
  - Inappropriate schedule of product administration [Unknown]

NARRATIVE: CASE EVENT DATE: 20210827
